FAERS Safety Report 25203464 (Version 1)
Quarter: 2025Q2

REPORT INFORMATION
  Report Type: Spontaneous
  Country: US (occurrence: None)
  Receive Date: 20250416
  Receipt Date: 20250416
  Transmission Date: 20250716
  Serious: Yes (unspecified)
  Sender: FDA-CTU
  Company Number: None

PATIENT
  Age: 46 Year
  Sex: Female
  Weight: 69.75 kg

DRUGS (2)
  1. ZEPBOUND [Suspect]
     Active Substance: TIRZEPATIDE
     Indication: Weight decreased
     Route: 050
     Dates: start: 20250309, end: 20250406
  2. Ativan as needed [Concomitant]

REACTIONS (6)
  - Anxiety [None]
  - Feeling of despair [None]
  - Tremor [None]
  - Nausea [None]
  - Thinking abnormal [None]
  - Cardiac disorder [None]

NARRATIVE: CASE EVENT DATE: 20250410
